FAERS Safety Report 18822881 (Version 1)
Quarter: 2021Q1

REPORT INFORMATION
  Report Type: Spontaneous
  Country: FR (occurrence: FR)
  Receive Date: 20210202
  Receipt Date: 20210202
  Transmission Date: 20210419
  Serious: Yes (Congenital Anomaly, Other)
  Sender: FDA-Public Use
  Company Number: FR-GLAXOSMITHKLINE-FR2021017595

PATIENT
  Age: 36 Year
  Sex: Female
  Weight: 60 kg

DRUGS (1)
  1. LAMICTAL [Suspect]
     Active Substance: LAMOTRIGINE
     Indication: EPILEPSY
     Dosage: 4 DF, QD
     Route: 048
     Dates: start: 20190110

REACTIONS (5)
  - Chromosomal mutation [Not Recovered/Not Resolved]
  - PTPN11 gene mutation [Not Recovered/Not Resolved]
  - Abortion induced [Recovered/Resolved]
  - Exposure during pregnancy [Unknown]
  - Heart disease congenital [Not Recovered/Not Resolved]

NARRATIVE: CASE EVENT DATE: 20201014
